FAERS Safety Report 4424242-4 (Version None)
Quarter: 2004Q3

REPORT INFORMATION
  Report Type: 
  Country: None (occurrence: None)
  Receive Date: 20040715
  Receipt Date: 20040503
  Transmission Date: 20050211
  Serious: Yes (Hospitalization)
  Sender: FDA-Public Use
  Company Number: 2004211462US

PATIENT
  Age: 49 Year
  Sex: Female

DRUGS (4)
  1. CELEBREX [Suspect]
     Indication: OSTEOARTHRITIS
     Dosage: 200 MG, QD,
     Dates: start: 20010101
  2. SKELAXIN [Concomitant]
  3. CENESTIN [Concomitant]
  4. PROMETRIUM [Concomitant]

REACTIONS (2)
  - NEPHROLITHIASIS [None]
  - PROTEIN URINE PRESENT [None]
